FAERS Safety Report 15928813 (Version 2)
Quarter: 2019Q1

REPORT INFORMATION
  Report Type: Spontaneous
  Country: RO (occurrence: RO)
  Receive Date: 20190206
  Receipt Date: 20190220
  Transmission Date: 20190417
  Serious: Yes (Hospitalization, Other)
  Sender: FDA-Public Use
  Company Number: RO-ASTRAZENECA-2019SE20180

PATIENT
  Age: 57 Year
  Sex: Male

DRUGS (8)
  1. FORXIGA [Suspect]
     Active Substance: DAPAGLIFLOZIN
     Indication: TYPE 2 DIABETES MELLITUS
     Route: 048
     Dates: start: 201811, end: 20190201
  2. BISOPROLOL [Concomitant]
     Active Substance: BISOPROLOL
  3. HUMALOG [Concomitant]
     Active Substance: INSULIN LISPRO
  4. CO-PRENESSA [Concomitant]
     Active Substance: INDAPAMIDE\PERINDOPRIL ERBUMINE
  5. AUGMENTIN [Concomitant]
     Active Substance: AMOXICILLIN\CLAVULANATE POTASSIUM
  6. METFORMIN [Concomitant]
     Active Substance: METFORMIN HYDROCHLORIDE
  7. ASPENTER [Concomitant]
     Active Substance: ASPIRIN
  8. ATORVASTATIN [Concomitant]
     Active Substance: ATORVASTATIN

REACTIONS (9)
  - Sepsis [Unknown]
  - Hypotension [Unknown]
  - Fournier^s gangrene [Unknown]
  - Haemodynamic instability [Unknown]
  - Oxygen saturation decreased [Unknown]
  - Pancreatic steatosis [Unknown]
  - Cardiac fibrillation [Unknown]
  - Perineal cellulitis [Unknown]
  - Anal abscess [Unknown]
